FAERS Safety Report 12052639 (Version 1)
Quarter: 2016Q1

REPORT INFORMATION
  Report Type: Spontaneous
  Country: US (occurrence: US)
  Receive Date: 20160209
  Receipt Date: 20160209
  Transmission Date: 20160526
  Serious: No
  Sender: FDA-Public Use
  Company Number: US-ABBVIE-15P-163-1448370-00

PATIENT
  Sex: Female

DRUGS (1)
  1. HUMIRA [Suspect]
     Active Substance: ADALIMUMAB
     Indication: PSORIATIC ARTHROPATHY
     Route: 058

REACTIONS (10)
  - Depression [Unknown]
  - Fibromyalgia [Unknown]
  - Anxiety [Unknown]
  - Cellulitis [Unknown]
  - Adverse drug reaction [Unknown]
  - Pyrexia [Unknown]
  - Urinary tract infection [Unknown]
  - Amenorrhoea [Unknown]
  - Feeling abnormal [Unknown]
  - Secondary hypogonadism [Unknown]
